FAERS Safety Report 4922446-5 (Version None)
Quarter: 2006Q1

REPORT INFORMATION
  Report Type: 
  Country: None (occurrence: None)
  Receive Date: 20060224
  Receipt Date: 20050824
  Transmission Date: 20060701
  Serious: Yes (Hospitalization, Other)
  Sender: FDA-Public Use
  Company Number: US-MERCK-0508USA04075

PATIENT
  Age: 44 Year
  Sex: Male
  Weight: 73 kg

DRUGS (1)
  1. VIOXX [Suspect]
     Indication: BACK PAIN
     Route: 048
     Dates: start: 20000101, end: 20040310

REACTIONS (17)
  - ACUTE MYOCARDIAL INFARCTION [None]
  - ARTERIOSCLEROSIS CORONARY ARTERY [None]
  - ARTHROPATHY [None]
  - BACK DISORDER [None]
  - BACK PAIN [None]
  - CARDIAC DISORDER [None]
  - CHEST PAIN [None]
  - CORONARY ARTERY OCCLUSION [None]
  - DYSPNOEA [None]
  - HYPOAESTHESIA [None]
  - LYMPHADENOPATHY [None]
  - LYMPHADENOPATHY MEDIASTINAL [None]
  - PAIN IN EXTREMITY [None]
  - PLEURITIC PAIN [None]
  - PNEUMONIA [None]
  - PRESCRIBED OVERDOSE [None]
  - WHITE BLOOD CELL COUNT INCREASED [None]
